FAERS Safety Report 6227530-4 (Version None)
Quarter: 2009Q2

REPORT INFORMATION
  Report Type: 
  Country: None (occurrence: None)
  Receive Date: 20090612
  Receipt Date: 20090604
  Transmission Date: 20091009
  Serious: Yes (Hospitalization, Other)
  Sender: FDA-Public Use
  Company Number: US-PFIZER INC-2005103617

PATIENT
  Sex: Female
  Weight: 109 kg

DRUGS (7)
  1. PROVERA [Suspect]
     Indication: HORMONE REPLACEMENT THERAPY
     Dosage: 2.5 MG, UNK
     Route: 048
     Dates: start: 19920101, end: 19970101
  2. MEDROXYPROGESTERONE AND MEDROXYPROGESTERONE ACETATE [Suspect]
     Indication: HORMONE REPLACEMENT THERAPY
     Route: 048
     Dates: start: 19920101, end: 19990101
  3. MEDROXYPROGESTERONE [Suspect]
     Indication: HORMONE REPLACEMENT THERAPY
     Dosage: 2.5 MG, UNK
  4. PREMARIN [Suspect]
     Indication: HORMONE REPLACEMENT THERAPY
     Dosage: 0.625 MG, UNK
     Dates: start: 19920101, end: 19980101
  5. CYCRIN [Suspect]
     Indication: HORMONE REPLACEMENT THERAPY
     Route: 065
     Dates: start: 19920101, end: 19990101
  6. ESTRACE [Suspect]
     Indication: HORMONE REPLACEMENT THERAPY
     Dosage: 1 MG, UNK
     Route: 065
     Dates: start: 19960101, end: 19970101
  7. PREMPRO [Suspect]
     Indication: HORMONE REPLACEMENT THERAPY
     Dosage: UNK
     Dates: start: 19971201, end: 19990101

REACTIONS (1)
  - BREAST CANCER [None]
